FAERS Safety Report 14634739 (Version 1)
Quarter: 2018Q1

REPORT INFORMATION
  Report Type: Spontaneous
  Country: US (occurrence: US)
  Receive Date: 20180313
  Receipt Date: 20180313
  Transmission Date: 20180509
  Serious: Yes (Other)
  Sender: FDA-Public Use
  Company Number: None

PATIENT
  Sex: Female

DRUGS (1)
  1. GLATIRAMER 40MG MYLAN [Suspect]
     Active Substance: GLATIRAMER
     Route: 058
     Dates: start: 20180118

REACTIONS (7)
  - Hyperhidrosis [None]
  - Dizziness [None]
  - Dyspnoea [None]
  - Chills [None]
  - Tremor [None]
  - Flushing [None]
  - Chest discomfort [None]
